FAERS Safety Report 11244805 (Version 2)
Quarter: 2016Q2

REPORT INFORMATION
  Report Type: Spontaneous
  Country: US (occurrence: US)
  Receive Date: 20150707
  Receipt Date: 20160623
  Transmission Date: 20160815
  Serious: Yes (Death, Hospitalization, Other)
  Sender: FDA-Public Use
  Company Number: US-MERCK-1507USA002564

PATIENT
  Sex: Male
  Weight: 60.77 kg

DRUGS (1)
  1. JANUVIA [Suspect]
     Active Substance: SITAGLIPTIN PHOSPHATE
     Indication: TYPE 2 DIABETES MELLITUS
     Dosage: 100 MG, QD
     Route: 048
     Dates: start: 200709, end: 201003

REACTIONS (4)
  - Pancreatic carcinoma [Unknown]
  - Dehydration [Unknown]
  - Death [Fatal]
  - Biopsy [Unknown]

NARRATIVE: CASE EVENT DATE: 201207
